FAERS Safety Report 5701346-7 (Version None)
Quarter: 2008Q2

REPORT INFORMATION
  Report Type: 
  Country: None (occurrence: None)
  Receive Date: 20080410
  Receipt Date: 20080404
  Transmission Date: 20081010
  Serious: Yes (Hospitalization)
  Sender: FDA-Public Use
  Company Number: BR-ABBOTT-08P-020-0444601-00

PATIENT
  Sex: Female

DRUGS (6)
  1. HUMIRA [Suspect]
     Indication: RHEUMATOID ARTHRITIS
     Route: 058
     Dates: start: 20060401
  2. UNKNOWN SPRAY [Concomitant]
     Indication: BRONCHITIS
     Route: 048
  3. UNKNOWN SYRUP [Concomitant]
     Indication: BRONCHITIS
     Route: 048
  4. UNKNOWN TABLET [Concomitant]
     Indication: BRONCHITIS
     Route: 048
  5. UNKNOWN EYEWASH [Concomitant]
     Indication: GLAUCOMA
     Route: 061
  6. UNKNOWN OINTMENT [Concomitant]
     Indication: GLAUCOMA
     Route: 061

REACTIONS (2)
  - JOINT SPRAIN [None]
  - PNEUMONIA [None]
